FAERS Safety Report 9090791 (Version 1)
Quarter: 2013Q1

REPORT INFORMATION
  Report Type: Report from Study
  Country: US (occurrence: US)
  Receive Date: 20130201
  Receipt Date: 20130201
  Transmission Date: 20140127
  Serious: No
  Sender: FDA-Public Use
  Company Number: US-ABBOTT-12P-163-1021068-00

PATIENT
  Age: 56 Year
  Sex: Male

DRUGS (6)
  1. HUMIRA [Suspect]
     Indication: CROHN^S DISEASE
     Dosage: LOADING DOSE
     Dates: start: 20121207
  2. PREDNISONE [Concomitant]
     Indication: PRODUCT USED FOR UNKNOWN INDICATION
  3. PENTASA [Concomitant]
     Indication: PRODUCT USED FOR UNKNOWN INDICATION
  4. NORVASC [Concomitant]
     Indication: BLOOD PRESSURE
  5. PROPRANOLOL [Concomitant]
     Indication: BLOOD PRESSURE
  6. LANOXIN [Concomitant]
     Indication: BLOOD PRESSURE

REACTIONS (1)
  - Swelling [Not Recovered/Not Resolved]
